FAERS Safety Report 6926536-7 (Version None)
Quarter: 2010Q3

REPORT INFORMATION
  Report Type: 
  Country: None (occurrence: None)
  Receive Date: 20100816
  Receipt Date: 20100806
  Transmission Date: 20110219
  Serious: Yes (Hospitalization, Other)
  Sender: FDA-Public Use
  Company Number: US-ABBOTT-10P-163-0662239-00

PATIENT
  Sex: Female

DRUGS (4)
  1. CYCLOSPORINE [Suspect]
     Indication: APLASTIC ANAEMIA
     Dates: start: 20100501, end: 20100602
  2. ECULIZUMAB [Suspect]
     Indication: APLASTIC ANAEMIA
     Route: 042
  3. ANTITHYMOCYTE IMMUNOGLOBULIN [Suspect]
     Indication: APLASTIC ANAEMIA
  4. PREDNISONE [Concomitant]
     Indication: PRODUCT USED FOR UNKNOWN INDICATION
     Dates: end: 20100602

REACTIONS (7)
  - BLOOD LACTATE DEHYDROGENASE INCREASED [None]
  - DYSSTASIA [None]
  - GAIT DISTURBANCE [None]
  - HYPERAESTHESIA [None]
  - PAIN IN EXTREMITY [None]
  - PLATELET COUNT DECREASED [None]
  - SPINAL DEFORMITY [None]
